FAERS Safety Report 21624435 (Version 11)
Quarter: 2023Q4

REPORT INFORMATION
  Report Type: Spontaneous
  Country: US (occurrence: US)
  Receive Date: 20221121
  Receipt Date: 20231221
  Transmission Date: 20240110
  Serious: Yes (Other)
  Sender: FDA-Public Use
  Company Number: US-BEH-2022152141

PATIENT
  Age: 34 Year
  Sex: Male

DRUGS (22)
  1. IDELVION [Suspect]
     Active Substance: COAGULATION FACTOR IX RECOMBINANT HUMAN
     Indication: Factor VIII deficiency
     Dosage: 4000 INTERNATIONAL UNIT, QW
     Route: 042
     Dates: start: 20220114
  2. IDELVION [Suspect]
     Active Substance: COAGULATION FACTOR IX RECOMBINANT HUMAN
     Indication: Factor VIII deficiency
     Dosage: 4000 INTERNATIONAL UNIT, QW
     Route: 042
     Dates: start: 20220114
  3. IDELVION [Suspect]
     Active Substance: COAGULATION FACTOR IX RECOMBINANT HUMAN
     Indication: Prophylaxis
     Dosage: 4000 INTERNATIONAL UNIT, QW
     Route: 042
     Dates: start: 202201
  4. IDELVION [Suspect]
     Active Substance: COAGULATION FACTOR IX RECOMBINANT HUMAN
     Indication: Prophylaxis
     Dosage: 4000 INTERNATIONAL UNIT, QW
     Route: 042
     Dates: start: 202201
  5. IDELVION [Suspect]
     Active Substance: COAGULATION FACTOR IX RECOMBINANT HUMAN
     Indication: Factor IX deficiency
     Dosage: 4000 INTERNATIONAL UNIT, QW
     Route: 042
     Dates: start: 202203
  6. IDELVION [Suspect]
     Active Substance: COAGULATION FACTOR IX RECOMBINANT HUMAN
     Indication: Factor IX deficiency
     Dosage: 4000 INTERNATIONAL UNIT, QW
     Route: 042
     Dates: start: 202203
  7. IDELVION [Suspect]
     Active Substance: COAGULATION FACTOR IX RECOMBINANT HUMAN
     Dosage: 4000 INTERNATIONAL UNIT, QW
     Route: 042
     Dates: start: 202303
  8. IDELVION [Suspect]
     Active Substance: COAGULATION FACTOR IX RECOMBINANT HUMAN
     Dosage: 4000 INTERNATIONAL UNIT, QW
     Route: 042
     Dates: start: 202303
  9. IDELVION [Suspect]
     Active Substance: COAGULATION FACTOR IX RECOMBINANT HUMAN
     Dosage: 4000 INTERNATIONAL UNIT, PRN
     Route: 042
     Dates: start: 202303
  10. IDELVION [Suspect]
     Active Substance: COAGULATION FACTOR IX RECOMBINANT HUMAN
     Dosage: 4000 INTERNATIONAL UNIT, PRN
     Route: 042
     Dates: start: 202303
  11. IDELVION [Suspect]
     Active Substance: COAGULATION FACTOR IX RECOMBINANT HUMAN
     Dosage: 4000 INTERNATIONAL UNIT, PRN
     Route: 042
     Dates: start: 202201
  12. IDELVION [Suspect]
     Active Substance: COAGULATION FACTOR IX RECOMBINANT HUMAN
     Dosage: 4000 INTERNATIONAL UNIT, PRN
     Route: 042
     Dates: start: 202201
  13. IDELVION [Suspect]
     Active Substance: COAGULATION FACTOR IX RECOMBINANT HUMAN
     Dosage: 2 DOSAGE FORM
     Route: 065
     Dates: start: 202305
  14. IDELVION [Suspect]
     Active Substance: COAGULATION FACTOR IX RECOMBINANT HUMAN
     Dosage: 2 DOSAGE FORM
     Route: 065
     Dates: start: 202305
  15. IDELVION [Suspect]
     Active Substance: COAGULATION FACTOR IX RECOMBINANT HUMAN
     Indication: Factor IX deficiency
     Dosage: 4000 INTERNATIONAL UNIT, QW
     Route: 042
     Dates: start: 202201
  16. IDELVION [Suspect]
     Active Substance: COAGULATION FACTOR IX RECOMBINANT HUMAN
     Indication: Factor IX deficiency
     Dosage: 4000 INTERNATIONAL UNIT, QW
     Route: 042
     Dates: start: 202201
  17. IDELVION [Suspect]
     Active Substance: COAGULATION FACTOR IX RECOMBINANT HUMAN
     Indication: Prophylaxis
     Dosage: 4000 INTERNATIONAL UNIT, PRN FOR 2 DAYS
     Route: 042
     Dates: start: 202201
  18. IDELVION [Suspect]
     Active Substance: COAGULATION FACTOR IX RECOMBINANT HUMAN
     Indication: Prophylaxis
     Dosage: 4000 INTERNATIONAL UNIT, PRN FOR 2 DAYS
     Route: 042
     Dates: start: 202201
  19. IDELVION [Suspect]
     Active Substance: COAGULATION FACTOR IX RECOMBINANT HUMAN
     Dosage: 3 DOSES
     Route: 065
  20. IDELVION [Suspect]
     Active Substance: COAGULATION FACTOR IX RECOMBINANT HUMAN
     Dosage: 3 DOSES
     Route: 065
  21. IDELVION [Suspect]
     Active Substance: COAGULATION FACTOR IX RECOMBINANT HUMAN
     Dosage: UNK
     Route: 042
  22. IDELVION [Suspect]
     Active Substance: COAGULATION FACTOR IX RECOMBINANT HUMAN
     Dosage: UNK
     Route: 042

REACTIONS (17)
  - Haemarthrosis [Unknown]
  - Haemarthrosis [Unknown]
  - Haemarthrosis [Recovered/Resolved]
  - Haemarthrosis [Recovered/Resolved]
  - Haemarthrosis [Unknown]
  - Haemarthrosis [Unknown]
  - Haemarthrosis [Unknown]
  - Haemarthrosis [Unknown]
  - Haemarthrosis [Unknown]
  - Haemarthrosis [Unknown]
  - Traumatic haemorrhage [Recovered/Resolved]
  - Limb injury [Unknown]
  - Gastroenteritis viral [Unknown]
  - Haemarthrosis [Unknown]
  - Haemarthrosis [Unknown]
  - Gingival bleeding [Unknown]
  - Haemarthrosis [Unknown]

NARRATIVE: CASE EVENT DATE: 20230101
